FAERS Safety Report 6585067-7 (Version None)
Quarter: 2010Q1

REPORT INFORMATION
  Report Type: 
  Country: None (occurrence: None)
  Receive Date: 20100217
  Receipt Date: 20100215
  Transmission Date: 20100710
  Serious: Yes (Hospitalization)
  Sender: FDA-Public Use
  Company Number: FR-ROCHE-684094

PATIENT
  Sex: Male

DRUGS (6)
  1. TAMIFLU [Suspect]
     Route: 048
     Dates: start: 20100106, end: 20100111
  2. IBUPROFENE [Suspect]
     Dosage: DOSE: 1 DOSE TWICE DAILY
     Route: 048
     Dates: start: 20100106, end: 20100112
  3. AUGMENTIN [Suspect]
     Route: 048
     Dates: start: 20100106, end: 20100112
  4. DOLIPRANE [Suspect]
     Route: 048
     Dates: start: 20100106, end: 20100112
  5. BRONCHOKOD [Suspect]
     Route: 048
     Dates: start: 20100106, end: 20100112
  6. RHINOFLUIMUCIL [Suspect]
     Route: 050
     Dates: start: 20100106, end: 20100112

REACTIONS (1)
  - RENAL FAILURE [None]
